FAERS Safety Report 8304215-1 (Version None)
Quarter: 2012Q2

REPORT INFORMATION
  Report Type: 
  Country: None (occurrence: None)
  Receive Date: 20120423
  Receipt Date: 20120410
  Transmission Date: 20120825
  Serious: Yes (Other)
  Sender: FDA-Public Use
  Company Number: US-SANOFI-AVENTIS-2012SA020278

PATIENT
  Age: 33 Year
  Sex: Female
  Weight: 68 kg

DRUGS (5)
  1. ALLEGRA-D 12 HOUR [Suspect]
     Route: 048
     Dates: start: 20120320, end: 20120322
  2. ALLEGRA-D 12 HOUR [Suspect]
     Indication: NASAL CONGESTION
     Route: 048
     Dates: start: 20120320, end: 20120322
  3. ALLEGRA-D 12 HOUR [Suspect]
     Indication: SINUS CONGESTION
     Route: 048
     Dates: start: 20120320, end: 20120322
  4. WELLBUTRIN [Concomitant]
     Dates: start: 20120306
  5. NEOCON [Concomitant]

REACTIONS (8)
  - NERVOUSNESS [None]
  - FEELING ABNORMAL [None]
  - ABDOMINAL PAIN [None]
  - FLATULENCE [None]
  - PANIC ATTACK [None]
  - ABDOMINAL DISTENSION [None]
  - FEELING JITTERY [None]
  - DIZZINESS [None]
